FAERS Safety Report 26088115 (Version 1)
Quarter: 2025Q4

REPORT INFORMATION
  Report Type: Spontaneous
  Country: US (occurrence: None)
  Receive Date: 20251125
  Receipt Date: 20251125
  Transmission Date: 20260118
  Serious: Yes (Life-Threatening)
  Sender: FDA-CTU
  Company Number: None

PATIENT
  Age: 76 Year
  Sex: Male
  Weight: 83 kg

DRUGS (5)
  1. ENOXAPARIN SODIUM [Suspect]
     Active Substance: ENOXAPARIN SODIUM
     Indication: Deep vein thrombosis
     Dosage: 80 MG TWICE A DAY SUBCUTANEOUS?
     Route: 058
     Dates: start: 20251111, end: 20251118
  2. WARFARIN [Concomitant]
     Active Substance: WARFARIN
  3. CIPROFLOXACIN [Concomitant]
     Active Substance: CIPROFLOXACIN
  4. INSULIN LISPRO [Concomitant]
     Active Substance: INSULIN LISPRO
  5. INSULIN GLARGINE [Concomitant]
     Active Substance: INSULIN GLARGINE

REACTIONS (2)
  - Abdominal wall haematoma [None]
  - Injection site haematoma [None]

NARRATIVE: CASE EVENT DATE: 20251120
